FAERS Safety Report 9867093 (Version 1)
Quarter: 2014Q1

REPORT INFORMATION
  Report Type: Spontaneous
  Country: US (occurrence: US)
  Receive Date: 20140204
  Receipt Date: 20140204
  Transmission Date: 20141002
  Serious: Yes (Other)
  Sender: FDA-Public Use
  Company Number: US-MALLINCKRODT-T201401101

PATIENT
  Age: 57 Year
  Sex: Male
  Weight: 90.7 kg

DRUGS (9)
  1. ANAFRANIL [Suspect]
     Indication: OBSESSIVE-COMPULSIVE DISORDER
     Dosage: 25 MG, QD
     Route: 048
     Dates: start: 201312
  2. ATORVASTATIN [Concomitant]
     Dosage: 10 MG, QD
     Route: 048
  3. SENSIPAR [Concomitant]
     Dosage: 30 MG, QD
     Route: 048
  4. ALPRAZOLAM [Concomitant]
     Dosage: 1 MG, TID
     Route: 048
  5. ENALAPRIL [Concomitant]
     Indication: HYPERTENSION
     Dosage: 20 MG, BID
     Route: 048
  6. DIOVAN [Concomitant]
     Indication: HYPERTENSION
     Dosage: 150 MG, BID
     Route: 048
  7. ATENOLOL [Concomitant]
     Indication: HYPERTENSION
     Dosage: 50 MG, BID
     Route: 048
  8. FOSRENOL [Concomitant]
     Dosage: 1000 MG X 3, QD
     Route: 048
  9. RENVELA [Concomitant]
     Dosage: 800 MG, X 3, TID-QID
     Route: 048

REACTIONS (1)
  - Hypertension [Not Recovered/Not Resolved]
